FAERS Safety Report 18122469 (Version 2)
Quarter: 2020Q3

REPORT INFORMATION
  Report Type: Report from Study
  Country: GB (occurrence: GB)
  Receive Date: 20200807
  Receipt Date: 20200811
  Transmission Date: 20201103
  Serious: Yes (Other)
  Sender: FDA-Public Use
  Company Number: GB-SAMSUNG BIOEPIS-SB-2020-24155

PATIENT
  Sex: Female

DRUGS (1)
  1. IMRALDI [Suspect]
     Active Substance: ADALIMUMAB
     Indication: ANKYLOSING SPONDYLITIS
     Route: 058
     Dates: start: 20190606

REACTIONS (6)
  - Suspected COVID-19 [Unknown]
  - Condition aggravated [Unknown]
  - Depressed mood [Unknown]
  - Influenza like illness [Unknown]
  - Dyspnoea [Unknown]
  - Infected bite [Unknown]
